FAERS Safety Report 8696798 (Version 3)
Quarter: 2012Q4

REPORT INFORMATION
  Report Type: 
  Country: BR (occurrence: BR)
  Receive Date: 20120801
  Receipt Date: 20120914
  Transmission Date: 20130627
  Serious: Yes (Life-Threatening, Hospitalization)
  Sender: FDA-Public Use
  Company Number: BR-B.I. PHARMACEUTICALS,INC./RIDGEFIELD-2012-BR-00829BR

PATIENT
  Age: 82 Year
  Sex: Male

DRUGS (4)
  1. PRADAXA [Suspect]
     Indication: DEEP VEIN THROMBOSIS
     Dosage: 220 mg
     Route: 048
     Dates: start: 20120702
  2. HALDOL [Concomitant]
     Indication: PSYCHOTIC DISORDER
  3. AKINETON [Concomitant]
     Indication: SCHIZOPHRENIA
  4. UNITIDAZIN [Concomitant]
     Indication: SCHIZOPHRENIA

REACTIONS (7)
  - Multi-organ failure [Not Recovered/Not Resolved]
  - Coma [Not Recovered/Not Resolved]
  - Septic shock [Not Recovered/Not Resolved]
  - Fracture displacement [Recovered/Resolved]
  - Urine potassium decreased [Recovered/Resolved]
  - Anaemia [Recovered/Resolved]
  - Syncope [Recovered/Resolved]
